FAERS Safety Report 6922129-6 (Version None)
Quarter: 2010Q3

REPORT INFORMATION
  Report Type: 
  Country: None (occurrence: None)
  Receive Date: 20100812
  Receipt Date: 20100806
  Transmission Date: 20110219
  Serious: Yes (Hospitalization)
  Sender: FDA-Public Use
  Company Number: FR-GILEAD-2010-0030917

PATIENT
  Sex: Male

DRUGS (5)
  1. HEPSERA [Suspect]
     Indication: HEPATITIS B
     Route: 048
     Dates: start: 20070501, end: 20090901
  2. BARACLUDE [Concomitant]
  3. ZELITREX [Concomitant]
  4. ORACILLINE [Concomitant]
  5. PERINDOPRIL ERBUMINE [Concomitant]

REACTIONS (3)
  - FANCONI SYNDROME [None]
  - GLOMERULONEPHRITIS MEMBRANOUS [None]
  - RENAL FAILURE [None]
